FAERS Safety Report 4483548-3 (Version None)
Quarter: 2004Q4

REPORT INFORMATION
  Report Type: 
  Country: None (occurrence: None)
  Receive Date: 20041025
  Receipt Date: 20040722
  Transmission Date: 20050328
  Serious: Yes (Death)
  Sender: FDA-Public Use
  Company Number: 200415558US

PATIENT
  Sex: Male
  Weight: 136.4 kg

DRUGS (4)
  1. TAXOTERE [Suspect]
     Indication: PROSTATE CANCER
     Route: 042
     Dates: start: 20040623, end: 20040623
  2. DECADRON [Concomitant]
     Dates: start: 20040622, end: 20040624
  3. CASODEX [Concomitant]
     Indication: PROSTATE CANCER
     Dosage: DOSE: UNK
  4. LUPRON [Concomitant]
     Indication: PROSTATE CANCER
     Dosage: DOSE: UNK

REACTIONS (3)
  - PANCREATITIS HAEMORRHAGIC [None]
  - PERITONITIS [None]
  - RESPIRATORY ARREST [None]
